FAERS Safety Report 21963201 (Version 4)
Quarter: 2024Q2

REPORT INFORMATION
  Report Type: Spontaneous
  Country: US (occurrence: US)
  Receive Date: 20230207
  Receipt Date: 20240430
  Transmission Date: 20240716
  Serious: Yes (Other)
  Sender: FDA-Public Use
  Company Number: US-PFIZER INC-PV202300023202

PATIENT
  Age: 81 Year
  Sex: Female
  Weight: 77.098 kg

DRUGS (6)
  1. IBRANCE [Suspect]
     Active Substance: PALBOCICLIB
     Indication: Breast cancer female
     Dosage: PO Q DAY DAYS 1-21 OF A 28 DAY CYCLE
     Route: 048
     Dates: start: 20220415
  2. IBRANCE [Suspect]
     Active Substance: PALBOCICLIB
     Indication: Breast cancer metastatic
     Dosage: PO DAYS 1-21
     Route: 048
     Dates: start: 20220421, end: 20231011
  3. IBRANCE [Suspect]
     Active Substance: PALBOCICLIB
     Indication: Bone cancer metastatic
     Dosage: 20 MG, 1X/DAY
     Dates: end: 202310
  4. FEMARA [Concomitant]
     Active Substance: LETROZOLE
     Indication: Breast cancer female
     Dosage: DAILY V4.0
     Dates: start: 20220421, end: 20231011
  5. FEMARA [Concomitant]
     Active Substance: LETROZOLE
     Dosage: OVER 10 YEARS
  6. XGEVA [Concomitant]
     Active Substance: DENOSUMAB
     Dosage: UNK
     Dates: start: 20150316

REACTIONS (11)
  - Pulmonary thrombosis [Unknown]
  - Deep vein thrombosis [Unknown]
  - Off label use [Unknown]
  - Arthritis [Not Recovered/Not Resolved]
  - Malaise [Recovered/Resolved]
  - Fatigue [Unknown]
  - Nausea [Unknown]
  - Vomiting [Unknown]
  - Decreased appetite [Unknown]
  - Confusional state [Unknown]
  - Disturbance in attention [Unknown]
